FAERS Safety Report 12263638 (Version 1)
Quarter: 2016Q2

REPORT INFORMATION
  Report Type: Report from Study
  Country: US (occurrence: US)
  Receive Date: 20160413
  Receipt Date: 20160413
  Transmission Date: 20160815
  Serious: No
  Sender: FDA-Public Use
  Company Number: PHEH2016US008907

PATIENT
  Sex: Female

DRUGS (5)
  1. EXTAVIA [Suspect]
     Active Substance: INTERFERON BETA-1B
     Dosage: 0.1875 MG (0.75 ML) (WEEK 5 TO 6), QOD
     Route: 058
  2. EXTAVIA [Suspect]
     Active Substance: INTERFERON BETA-1B
     Dosage: 0.25 MG (1 ML) (WEEK 7 ONWARDS), QOD
     Route: 058
  3. EXTAVIA [Suspect]
     Active Substance: INTERFERON BETA-1B
     Indication: MULTIPLE SCLEROSIS
     Dosage: 0.0625 MG (0.25 ML) (WEEK 1 TO 2), QOD
     Route: 058
     Dates: start: 20160215
  4. EXTAVIA [Suspect]
     Active Substance: INTERFERON BETA-1B
     Dosage: 0.125 MG (0.5 ML) (WEEK 3 TO 4), QOD
     Route: 058
  5. BENADRYL [Concomitant]
     Active Substance: DIPHENHYDRAMINE HYDROCHLORIDE
     Indication: PRODUCT USED FOR UNKNOWN INDICATION
     Route: 065

REACTIONS (4)
  - Malaise [Unknown]
  - Arthralgia [Unknown]
  - Insomnia [Unknown]
  - Chills [Unknown]
